FAERS Safety Report 9520011 (Version 1)
Quarter: 2013Q1

REPORT INFORMATION
  Report Type: Spontaneous
  Country: US (occurrence: None)
  Receive Date: 20130305
  Receipt Date: 20130305
  Transmission Date: 20140127
  Serious: Yes (Other)
  Sender: FDA-Public Use
  Company Number: 163-21880-12013096

PATIENT
  Age: 60 Year
  Sex: Male
  Weight: 114.76 kg

DRUGS (12)
  1. REVLIMID (LENALIDOMIDE) (25 MILLIGRAM, CAPSULES) [Suspect]
     Indication: PLASMA CELL MYELOMA
     Route: 048
     Dates: start: 20111007
  2. DEXAMETHASONE (DEXAMETHASONE) (TABLETS) [Concomitant]
  3. PREDNISONE (PREDNISONE) (TABLETS) [Concomitant]
  4. ALKERAN (MELPHALAN) (TABLETS) [Concomitant]
  5. BENAZEPRIL HCL (BENAZEPRIL HYDROCHLORIDE) [Concomitant]
  6. METFORMIN HCL (METFORMIN HYDROCHLORIDE) [Concomitant]
  7. ASPIRIN (ACETYLSALICYLIC ACID) [Concomitant]
  8. ROXICET (OXYCOCET) [Concomitant]
  9. FISH OIL (FISH OIL) [Concomitant]
  10. HYDROCHLOROTHIAZIDE (HYDROCHLOROTHIAZIDE) [Concomitant]
  11. GABAPENTIN (GABAPENTIN) [Concomitant]
  12. CENTRUM SILVER (CENTRUM SILVER) [Concomitant]

REACTIONS (1)
  - Pancytopenia [None]
